FAERS Safety Report 16001972 (Version 1)
Quarter: 2019Q1

REPORT INFORMATION
  Report Type: Report from Study
  Country: JP (occurrence: JP)
  Receive Date: 20190225
  Receipt Date: 20190225
  Transmission Date: 20190418
  Serious: Yes (Other)
  Sender: FDA-Public Use
  Company Number: JP-MYLANLABS-2019M1017221

PATIENT
  Age: 84 Year
  Sex: Male

DRUGS (1)
  1. MAPROTILINE [Suspect]
     Active Substance: MAPROTILINE
     Indication: DEPRESSION
     Route: 065

REACTIONS (4)
  - Dementia [Unknown]
  - Withdrawal syndrome [Unknown]
  - Restlessness [Unknown]
  - Parkinsonism [Recovered/Resolved]
